FAERS Safety Report 10031720 (Version 1)
Quarter: 2014Q1

REPORT INFORMATION
  Report Type: Spontaneous
  Country: US (occurrence: US)
  Receive Date: 20140324
  Receipt Date: 20140324
  Transmission Date: 20141002
  Serious: No
  Sender: FDA-Public Use
  Company Number: US-PFIZER INC-2014082661

PATIENT
  Age: 61 Year
  Sex: Male
  Weight: 95.24 kg

DRUGS (2)
  1. DILANTIN-125 [Suspect]
     Indication: CONVULSION
     Dosage: 300MG IN MORNING AND 200MG IN EVENING, 2X/DAY
  2. TRAZODONE [Concomitant]
     Dosage: UNK

REACTIONS (4)
  - Headache [Unknown]
  - Insomnia [Unknown]
  - Visual acuity reduced [Unknown]
  - Myalgia [Unknown]
